APPROVED DRUG PRODUCT: AVAGARD
Active Ingredient: ALCOHOL; CHLORHEXIDINE GLUCONATE
Strength: 61%;1%
Dosage Form/Route: SOLUTION;TOPICAL
Application: N021074 | Product #001
Applicant: 3M HEALTH CARE INC
Approved: Jun 7, 2001 | RLD: Yes | RS: Yes | Type: OTC